FAERS Safety Report 10357721 (Version 1)
Quarter: 2014Q3

REPORT INFORMATION
  Report Type: Other
  Country: GB (occurrence: GB)
  Receive Date: 20140801
  Receipt Date: 20140801
  Transmission Date: 20150326
  Serious: Yes (Other)
  Sender: FDA-Public Use
  Company Number: GB-MYLAN-2014S1017532

PATIENT

DRUGS (1)
  1. OLANZAPINE. [Suspect]
     Active Substance: OLANZAPINE
     Indication: PRODUCT USED FOR UNKNOWN INDICATION
     Dosage: UNK
     Dates: start: 2004, end: 2008

REACTIONS (3)
  - Pain [Not Recovered/Not Resolved]
  - Inguinal hernia [Unknown]
  - Weight increased [Not Recovered/Not Resolved]
